FAERS Safety Report 8933001 (Version 1)
Quarter: 2012Q4

REPORT INFORMATION
  Report Type: 
  Country: US (occurrence: US)
  Receive Date: 20121128
  Receipt Date: 20121128
  Transmission Date: 20130627
  Serious: Yes (Other)
  Sender: FDA-Public Use
  Company Number: US-ASTRAZENECA-2012SE87873

PATIENT
  Age: 58 Year
  Sex: Male
  Weight: 72.6 kg

DRUGS (8)
  1. SEROQUEL XR [Suspect]
     Indication: BIPOLAR I DISORDER
     Route: 048
     Dates: start: 2006
  2. NEXIUM [Suspect]
     Indication: GASTROOESOPHAGEAL REFLUX DISEASE
     Route: 048
     Dates: start: 2007
  3. ZOCOR [Concomitant]
     Indication: ABDOMINAL DISCOMFORT
     Route: 048
     Dates: start: 2007
  4. LAMICTAL [Concomitant]
     Indication: BIPOLAR DISORDER
     Route: 048
  5. AMBIEN [Concomitant]
     Route: 048
  6. XELODA [Concomitant]
     Indication: CHEMOTHERAPY
     Dosage: 500 MG DAILY 6X
     Route: 048
  7. LIQUID HYDROCODONE [Concomitant]
  8. OXYCONTIN [Concomitant]
     Dosage: 30S EVERY 12 HOURS

REACTIONS (1)
  - Oesophageal carcinoma recurrent [Unknown]
